FAERS Safety Report 9315037 (Version 9)
Quarter: 2016Q3

REPORT INFORMATION
  Report Type: Report from Study
  Country: US (occurrence: US)
  Receive Date: 20130529
  Receipt Date: 20160815
  Transmission Date: 20161109
  Serious: Yes (Hospitalization)
  Sender: FDA-Public Use
  Company Number: US-MERCK-1305USA009383

PATIENT
  Age: 36 Year
  Sex: Female
  Weight: 77.51 kg

DRUGS (25)
  1. FILGRASTIM [Concomitant]
     Active Substance: FILGRASTIM
     Indication: CHEMOTHERAPY
     Dosage: 300 MCG/0.5 ML ONCE DAILY
     Route: 058
     Dates: start: 20130411
  2. CLEOCIN [Concomitant]
     Active Substance: CLINDAMYCIN PHOSPHATE
     Indication: DERMATITIS ACNEIFORM
     Dosage: APPLY TO AFFECTED AREAS, BID
     Route: 061
     Dates: start: 20130423
  3. LOPERAMIDE HYDROCHLORIDE. [Concomitant]
     Active Substance: LOPERAMIDE HYDROCHLORIDE
     Indication: DIARRHOEA
     Dosage: 2-4 MG, 8.2-4 HOURS
     Route: 048
     Dates: start: 20130418
  4. PREPARATION H OINTMENT [Suspect]
     Active Substance: MINERAL OIL\PETROLATUM\PHENYLEPHRINE HYDROCHLORIDE
     Indication: HAEMORRHOIDS
     Dosage: UNK, PRN
     Route: 061
     Dates: start: 2002
  5. DEXAMETHASONE. [Suspect]
     Active Substance: DEXAMETHASONE
     Indication: PREMEDICATION
  6. EMLA [Concomitant]
     Active Substance: LIDOCAINE\PRILOCAINE
     Indication: PROPHYLAXIS
     Dosage: APPLY TO AFFECTED AREA AS NEEDED
     Route: 061
     Dates: start: 20130311
  7. PROCHLORPERAZINE. [Concomitant]
     Active Substance: PROCHLORPERAZINE
     Indication: NAUSEA
     Dosage: UNK
     Route: 048
  8. DEXAMETHASONE. [Suspect]
     Active Substance: DEXAMETHASONE
     Indication: ALLERGY PROPHYLAXIS
     Dosage: 2 X WEEK, TAKE 8 MG AT BED TIME THE NIGHT BEFORE CHEMOTHERAPY
     Route: 048
     Dates: start: 20130410
  9. LORAZEPAM. [Concomitant]
     Active Substance: LORAZEPAM
     Indication: NAUSEA
  10. OXYCODONE [Concomitant]
     Active Substance: OXYCODONE
     Indication: PAIN
  11. COMPAZINE [Concomitant]
     Active Substance: PROCHLORPERAZINE MALEATE
     Indication: NAUSEA
     Dosage: 10 MG, Q6H AS NEEDED
     Dates: start: 20130411
  12. IBUPROFEN. [Concomitant]
     Active Substance: IBUPROFEN
     Indication: PAIN
     Dosage: 200-600MG AS NEEDED
     Route: 048
     Dates: start: 2002
  13. LEUPROLIDE ACETATE. [Concomitant]
     Active Substance: LEUPROLIDE ACETATE
     Indication: PROPHYLAXIS
     Dosage: 1 X MONTH
     Route: 030
     Dates: start: 20130322
  14. TRASTUZUMAB [Suspect]
     Active Substance: TRASTUZUMAB
     Dosage: 147 MG, QW
     Route: 042
     Dates: start: 20130411, end: 20130523
  15. FILGRASTIM [Concomitant]
     Active Substance: FILGRASTIM
     Indication: NEUTROPENIA
  16. LORAZEPAM. [Concomitant]
     Active Substance: LORAZEPAM
     Indication: DIARRHOEA
  17. PREPARATION H OINTMENT [Suspect]
     Active Substance: MINERAL OIL\PETROLATUM\PHENYLEPHRINE HYDROCHLORIDE
     Indication: HAEMORRHOIDAL HAEMORRHAGE
  18. CLINDAMYCIN [Concomitant]
     Active Substance: CLINDAMYCIN\CLINDAMYCIN PHOSPHATE
     Indication: RASH
     Dosage: 2 X DAY
     Route: 061
     Dates: start: 20130423
  19. LORAZEPAM. [Concomitant]
     Active Substance: LORAZEPAM
     Indication: ANXIETY
     Dosage: 0.5 TO 1 TABS BY MOUTH EVERY SIX HOURS AS NEEDED
     Route: 048
     Dates: start: 20130311
  20. LORAZEPAM. [Concomitant]
     Active Substance: LORAZEPAM
     Indication: SLEEP DISORDER
  21. OXYCODONE [Concomitant]
     Active Substance: OXYCODONE
     Indication: CATHETER PLACEMENT
     Dosage: TAKE 1-3 TABS EVERY 6 HOURS AS NEEDED
     Route: 048
     Dates: start: 20130327
  22. PROCHLORPERAZINE. [Concomitant]
     Active Substance: PROCHLORPERAZINE
     Indication: NAUSEA
     Dosage: 1 SUPPOSITORY (25 MG) EVERY 8-12 HOURS AS NEEDED
     Route: 054
     Dates: start: 20130411
  23. PERCOCET [Concomitant]
     Active Substance: ACETAMINOPHEN\OXYCODONE HYDROCHLORIDE
     Indication: HAEMORRHOIDS
     Dosage: 1 TAB EVERY FOUR HOURS AS NEEDED. NOT TO EXEED 10 TABLETS PER ANY 24 HOURS
     Route: 048
     Dates: start: 20130508, end: 20130512
  24. MK-2206 [Suspect]
     Active Substance: INVESTIGATIONAL PRODUCT
     Indication: BREAST CANCER
     Dosage: 135 MG, QW
     Route: 048
     Dates: start: 20130411, end: 20130502
  25. PACLITAXEL. [Suspect]
     Active Substance: PACLITAXEL
     Dosage: 147 MG, QW
     Route: 042
     Dates: start: 20130411, end: 20130502

REACTIONS (1)
  - Perirectal abscess [Recovered/Resolved]

NARRATIVE: CASE EVENT DATE: 20130512
